FAERS Safety Report 4415904-3 (Version None)
Quarter: 2004Q3

REPORT INFORMATION
  Report Type: 
  Country: None (occurrence: None)
  Receive Date: 20040805
  Receipt Date: 20040521
  Transmission Date: 20050211
  Serious: No
  Sender: FDA-Public Use
  Company Number: US-GLAXOSMITHKLINE-A0511770A

PATIENT
  Age: 64 Year
  Sex: Female

DRUGS (6)
  1. AVANDAMET [Suspect]
     Dosage: 1TAB TWICE PER DAY
     Route: 048
     Dates: start: 20040201
  2. INSULIN [Concomitant]
  3. ZOCOR [Concomitant]
  4. TENORMIN [Concomitant]
  5. PROCARDIA XL [Concomitant]
  6. MONOPRIL [Concomitant]

REACTIONS (5)
  - ABDOMINAL PAIN UPPER [None]
  - ANOREXIA [None]
  - ASTHENIA [None]
  - FATIGUE [None]
  - NAUSEA [None]
